FAERS Safety Report 26069290 (Version 1)
Quarter: 2025Q4

REPORT INFORMATION
  Report Type: Spontaneous
  Country: US (occurrence: None)
  Receive Date: 20251120
  Receipt Date: 20251120
  Transmission Date: 20260118
  Serious: Yes (Hospitalization)
  Sender: FDA-CTU
  Company Number: None

PATIENT
  Age: 52 Year
  Sex: Male
  Weight: 135.3 kg

DRUGS (2)
  1. TAXOTERE [Suspect]
     Active Substance: DOCETAXEL
     Dates: end: 20250821
  2. GEMCITABINE HYDROCHLORIDE [Suspect]
     Active Substance: GEMCITABINE HYDROCHLORIDE
     Dates: end: 20250821

REACTIONS (9)
  - Haemostasis [None]
  - Chromaturia [None]
  - Haemorrhage urinary tract [None]
  - Suprapubic pain [None]
  - Urinary retention [None]
  - Urine abnormality [None]
  - Post procedural complication [None]
  - Urinary bladder haemorrhage [None]
  - Scar [None]

NARRATIVE: CASE EVENT DATE: 20251103
